FAERS Safety Report 14750322 (Version 1)
Quarter: 2018Q2

REPORT INFORMATION
  Report Type: Spontaneous
  Country: FR (occurrence: FR)
  Receive Date: 20180412
  Receipt Date: 20180412
  Transmission Date: 20180711
  Serious: Yes (Other)
  Sender: FDA-Public Use
  Company Number: FR-MERCK KGAA-2045618

PATIENT
  Age: 59 Year
  Sex: Female

DRUGS (4)
  1. NOVOTHYROX [Suspect]
     Active Substance: LEVOTHYROXINE SODIUM
     Dates: start: 20170816
  2. NOVOTHYROX [Suspect]
     Active Substance: LEVOTHYROXINE SODIUM
     Dates: start: 20170816
  3. NOVOTHYROX [Suspect]
     Active Substance: LEVOTHYROXINE SODIUM
     Dates: start: 20180106
  4. NOVOTHYROX [Suspect]
     Active Substance: LEVOTHYROXINE SODIUM
     Indication: AUTOIMMUNE THYROIDITIS
     Dates: start: 201703, end: 20170923

REACTIONS (27)
  - Nasopharyngitis [Recovering/Resolving]
  - Somnolence [Recovering/Resolving]
  - Blood thyroid stimulating hormone decreased [Recovering/Resolving]
  - Dry skin [Recovering/Resolving]
  - Dizziness [Recovering/Resolving]
  - Panic attack [Recovering/Resolving]
  - Fall [Recovering/Resolving]
  - Pain in extremity [Recovering/Resolving]
  - Disturbance in attention [Recovering/Resolving]
  - Anti-thyroid antibody [Recovering/Resolving]
  - Poor quality sleep [Recovering/Resolving]
  - Pain [Recovering/Resolving]
  - Gamma-glutamyltransferase increased [Recovering/Resolving]
  - Loss of personal independence in daily activities [Recovering/Resolving]
  - Balance disorder [Recovering/Resolving]
  - Fatigue [Recovering/Resolving]
  - Alopecia [Recovering/Resolving]
  - Suicidal ideation [Recovering/Resolving]
  - Back pain [Recovering/Resolving]
  - Social avoidant behaviour [Recovering/Resolving]
  - Apathy [Recovering/Resolving]
  - Cyanosis [Recovering/Resolving]
  - Palpitations [Recovering/Resolving]
  - Hypothermia [Recovering/Resolving]
  - Anxiety [Recovering/Resolving]
  - Depression [Recovering/Resolving]
  - Thyroglobulin increased [Recovering/Resolving]

NARRATIVE: CASE EVENT DATE: 20170303
